FAERS Safety Report 7972605-2 (Version None)
Quarter: 2011Q4

REPORT INFORMATION
  Report Type: 
  Country: None (occurrence: None)
  Receive Date: 20111213
  Receipt Date: 20111212
  Transmission Date: 20120403
  Serious: Yes (Hospitalization)
  Sender: FDA-Public Use
  Company Number: US-BAYER-2011-118966

PATIENT
  Sex: Female

DRUGS (3)
  1. ANALGESICS [Concomitant]
  2. INTERFERON BETA-1B [Suspect]
     Indication: RELAPSING-REMITTING MULTIPLE SCLEROSIS
     Dosage: UNK
     Dates: start: 19940426, end: 20080101
  3. INTERFERON BETA-1B [Suspect]
     Dosage: 4 MIU, QOD
     Route: 058
     Dates: start: 20111125

REACTIONS (2)
  - INTERVERTEBRAL DISC DEGENERATION [None]
  - BACK PAIN [None]
